FAERS Safety Report 13019192 (Version 16)
Quarter: 2017Q2

REPORT INFORMATION
  Report Type: Report from Study
  Country: MX (occurrence: MX)
  Receive Date: 20161212
  Receipt Date: 20170612
  Transmission Date: 20170830
  Serious: Yes (Hospitalization, Other)
  Sender: FDA-Public Use
  Company Number: MX-BAYER-2016-229117

PATIENT
  Age: 72 Year
  Sex: Female
  Weight: 28 kg

DRUGS (6)
  1. NEXAVAR [Suspect]
     Active Substance: SORAFENIB
     Indication: HEPATOCELLULAR CARCINOMA
     Dosage: 600 MG, QD (3 TABLETS: 1 IN THE MORNING, ONE THE NOON AND ONE IN THE NIGHT)
     Route: 048
     Dates: start: 20170221, end: 2017
  2. NEXAVAR [Suspect]
     Active Substance: SORAFENIB
     Indication: HEPATOCELLULAR CARCINOMA
     Dosage: 400 MG, QD
     Route: 048
     Dates: start: 2017, end: 2017
  3. NEXAVAR [Suspect]
     Active Substance: SORAFENIB
     Indication: HEPATOCELLULAR CARCINOMA
     Dosage: 800 MG, QD
     Dates: start: 20161124, end: 20161222
  4. NEXAVAR [Suspect]
     Active Substance: SORAFENIB
     Indication: HEPATOCELLULAR CARCINOMA
     Dosage: 400 MG, BID
     Route: 048
     Dates: start: 2017, end: 20170524
  5. RANITIDINE. [Concomitant]
     Active Substance: RANITIDINE
  6. OMEPRAZOLE. [Concomitant]
     Active Substance: OMEPRAZOLE

REACTIONS (90)
  - Toxicity to various agents [Recovered/Resolved]
  - Suicidal ideation [Recovered/Resolved]
  - Epistaxis [Recovered/Resolved]
  - Contusion [Recovered/Resolved]
  - Swelling face [Recovered/Resolved]
  - Paraesthesia [Recovered/Resolved]
  - Pain [Recovered/Resolved]
  - Mouth ulceration [Recovered/Resolved]
  - Asthenia [Not Recovered/Not Resolved]
  - Influenza [Recovered/Resolved]
  - Influenza [Not Recovered/Not Resolved]
  - Hypoaesthesia oral [Recovered/Resolved]
  - Feeling abnormal [None]
  - Dizziness [Recovered/Resolved]
  - Depressed mood [Recovered/Resolved]
  - Fall [Not Recovered/Not Resolved]
  - Skin fissures [None]
  - Depressed mood [None]
  - Platelet count decreased [Not Recovered/Not Resolved]
  - Mouth ulceration [Not Recovered/Not Resolved]
  - Blister [Not Recovered/Not Resolved]
  - Ear discomfort [Recovered/Resolved]
  - Epistaxis [Not Recovered/Not Resolved]
  - Mouth haemorrhage [Recovered/Resolved]
  - Epistaxis [Recovered/Resolved]
  - Aphthous ulcer [Recovered/Resolved]
  - Anxiety [Recovered/Resolved]
  - Abdominal pain upper [Recovered/Resolved]
  - Hypoaesthesia [Recovered/Resolved]
  - Rash vesicular [Not Recovered/Not Resolved]
  - Incorrect dose administered [Recovered/Resolved]
  - Blister [None]
  - Dry skin [Not Recovered/Not Resolved]
  - Skin fissures [Not Recovered/Not Resolved]
  - Hepatocellular carcinoma [Not Recovered/Not Resolved]
  - Inflammation [Recovering/Resolving]
  - Dyspepsia [Recovered/Resolved]
  - Feeling of despair [Recovered/Resolved]
  - Depressed mood [Not Recovered/Not Resolved]
  - Intentional product misuse [Not Recovered/Not Resolved]
  - Platelet count decreased [Not Recovered/Not Resolved]
  - Fear [Recovered/Resolved]
  - Dizziness [Recovered/Resolved]
  - Inflammation [Recovered/Resolved]
  - Dry skin [Recovered/Resolved]
  - Hypoaesthesia [Recovered/Resolved]
  - Gait disturbance [None]
  - Dysphonia [Not Recovered/Not Resolved]
  - Vomiting [Recovered/Resolved]
  - Diarrhoea [Recovered/Resolved]
  - Ocular discomfort [Recovered/Resolved]
  - Epistaxis [Recovered/Resolved]
  - Haemorrhage [Not Recovered/Not Resolved]
  - Mouth haemorrhage [Not Recovered/Not Resolved]
  - Hypertension [Recovered/Resolved]
  - Depressed mood [Not Recovered/Not Resolved]
  - Decreased activity [None]
  - Depressed mood [None]
  - Skin ulcer [Recovered/Resolved]
  - Pharyngeal ulceration [Not Recovered/Not Resolved]
  - Gingival ulceration [Not Recovered/Not Resolved]
  - Urticaria [Not Recovered/Not Resolved]
  - Asthenia [Recovered/Resolved]
  - Mouth haemorrhage [Recovered/Resolved]
  - Gingival bleeding [Recovered/Resolved]
  - Feeling cold [Recovered/Resolved]
  - Fall [Recovered/Resolved]
  - Arthralgia [Recovered/Resolved]
  - Depressed mood [Recovered/Resolved]
  - Depressed mood [Recovered/Resolved]
  - Blood pressure increased [Recovered/Resolved]
  - Alopecia [Not Recovered/Not Resolved]
  - Fatigue [Not Recovered/Not Resolved]
  - Platelet count decreased [Recovered/Resolved]
  - Rectal haemorrhage [Unknown]
  - Epistaxis [Recovered/Resolved]
  - Haematemesis [Recovered/Resolved]
  - Depression suicidal [Recovered/Resolved]
  - Genital pain [Recovered/Resolved]
  - Genital burning sensation [Recovered/Resolved]
  - Drug intolerance [Recovered/Resolved]
  - Feeling drunk [Recovered/Resolved]
  - Skin wound [Recovered/Resolved]
  - Hypertension [Not Recovered/Not Resolved]
  - Limb injury [Recovering/Resolving]
  - Limb injury [Not Recovered/Not Resolved]
  - Depression [Not Recovered/Not Resolved]
  - Dry skin [Unknown]
  - Pain in extremity [None]
  - Cough [Not Recovered/Not Resolved]

NARRATIVE: CASE EVENT DATE: 2016
